FAERS Safety Report 19912413 (Version 1)
Quarter: 2021Q4

REPORT INFORMATION
  Report Type: Spontaneous
  Country: US (occurrence: US)
  Receive Date: 20211001
  Receipt Date: 20211001
  Transmission Date: 20220303
  Serious: Yes (Hospitalization)
  Sender: FDA-Public Use
  Company Number: None

PATIENT
  Sex: Female

DRUGS (1)
  1. LUMAKRAS [Suspect]
     Active Substance: SOTORASIB
     Indication: Lung neoplasm malignant
     Route: 048
     Dates: start: 20210826

REACTIONS (5)
  - Paraesthesia [None]
  - Hypoaesthesia [None]
  - Thrombosis [None]
  - Diarrhoea [None]
  - Nausea [None]
